FAERS Safety Report 10574402 (Version 3)
Quarter: 2015Q1

REPORT INFORMATION
  Report Type: Spontaneous
  Country: UA (occurrence: UA)
  Receive Date: 20141110
  Receipt Date: 20150309
  Transmission Date: 20150720
  Serious: Yes (Hospitalization)
  Sender: FDA-Public Use
  Company Number: UA-ASTRAZENECA-2014SE83727

PATIENT
  Age: 24036 Day
  Sex: Male

DRUGS (4)
  1. MEDROL [Concomitant]
     Active Substance: METHYLPREDNISOLONE
     Indication: ASTHMA
     Route: 048
     Dates: start: 20141024
  2. MEDI-563 CODE NOT BROKEN [Suspect]
     Active Substance: INVESTIGATIONAL PRODUCT
     Indication: ASTHMA
     Dosage: EVERY 4 WEEKS FOR THE FIRST 3 DOSES, AND THEN EVERY 4 OR 8 WEEKS THEREAFTER
     Route: 058
     Dates: start: 20141016
  3. SYMBICORT [Suspect]
     Active Substance: BUDESONIDE\FORMOTEROL FUMARATE DIHYDRATE
     Indication: ASTHMA
     Dosage: 640 UG BUDESONIDE AND 18 UG FORMOTEROL TWO TIMES A DAY
     Route: 055
     Dates: start: 20140519
  4. SYMBICORT [Suspect]
     Active Substance: BUDESONIDE\FORMOTEROL FUMARATE DIHYDRATE
     Indication: ASTHMA
     Dosage: 1280 UG BUDESONIDE AND 36 UG FORMOTEROL TWO TIMES A DAY
     Route: 055
     Dates: start: 20141024

REACTIONS (1)
  - Asthma [Recovered/Resolved]

NARRATIVE: CASE EVENT DATE: 20141024
